FAERS Safety Report 9764165 (Version 1)
Quarter: 2013Q4

REPORT INFORMATION
  Report Type: Report from Study
  Country: BR (occurrence: BR)
  Receive Date: 20131216
  Receipt Date: 20131216
  Transmission Date: 20140711
  Serious: Yes (Other)
  Sender: FDA-Public Use
  Company Number: PHHY2013BR146980

PATIENT
  Sex: Female
  Weight: 45 kg

DRUGS (2)
  1. EXELON PATCH [Suspect]
     Indication: DEMENTIA ALZHEIMER^S TYPE
     Dosage: 13.3 MG (PATCH 15 CM2) DAILY
     Route: 062
  2. PAMELOR [Concomitant]
     Dosage: UNK UKN, UNK

REACTIONS (2)
  - Metastasis [Unknown]
  - Weight decreased [Unknown]
